FAERS Safety Report 9303597 (Version 2)
Quarter: 2013Q4

REPORT INFORMATION
  Report Type: Spontaneous
  Country: US (occurrence: US)
  Receive Date: 20130522
  Receipt Date: 20131203
  Transmission Date: 20140711
  Serious: No
  Sender: FDA-Public Use
  Company Number: US-PFIZER INC-2013136332

PATIENT
  Age: 69 Year
  Sex: Female

DRUGS (9)
  1. PREMARIN [Suspect]
     Dosage: 0.625 MG, 1X/DAY
     Route: 048
  2. PREMARIN [Suspect]
     Dosage: 0.9 MG, 1X/DAY (1 TABLET ONCE A DAY)
     Route: 048
  3. LISINOPRIL [Concomitant]
     Dosage: 40 MG, 1X/DAY
     Route: 048
  4. LORAZEPAM [Concomitant]
     Dosage: 0.5 MG, 2X/DAY AS NEEDED
     Route: 048
  5. MELOXICAM [Concomitant]
     Indication: PAIN
     Dosage: 7.5 MG, AS NEEDED (ONCE OR TWICE A DAY)
  6. MOTRIN IB [Concomitant]
     Dosage: 400 MG, 2X/DAY
     Route: 048
  7. FLUOXETINE HYDROCHLORIDE [Concomitant]
     Dosage: 40 MG, ALTERNATE DAY IN THE MORNING
     Route: 048
  8. ASPIRIN [Concomitant]
     Dosage: 325 MG, 1X/DAY
     Route: 048
  9. ALBUTEROL SULFATE [Concomitant]
     Indication: COUGH
     Dosage: 4 MG, 3X/DAY
     Route: 048

REACTIONS (1)
  - Flushing [Unknown]
